FAERS Safety Report 6247491-1 (Version None)
Quarter: 2009Q2

REPORT INFORMATION
  Report Type: 
  Country: None (occurrence: None)
  Receive Date: 20090626
  Receipt Date: 20090622
  Transmission Date: 20091009
  Serious: Yes (Death, Other)
  Sender: FDA-Public Use
  Company Number: US-CELGENEUS-163-21880-09061793

PATIENT
  Sex: Female

DRUGS (2)
  1. REVLIMID [Suspect]
     Indication: MULTIPLE MYELOMA
     Route: 048
     Dates: start: 20080501
  2. REVLIMID [Suspect]
     Route: 048
     Dates: start: 20081101, end: 20090501

REACTIONS (3)
  - BONE MARROW FAILURE [None]
  - DEATH [None]
  - DRUG INEFFECTIVE [None]
